FAERS Safety Report 5240086-8 (Version None)
Quarter: 2007Q1

REPORT INFORMATION
  Report Type: 
  Country: None (occurrence: None)
  Receive Date: 20070216
  Receipt Date: 20070207
  Transmission Date: 20070707
  Serious: Yes (Other)
  Sender: FDA-Public Use
  Company Number: US-PFIZER INC-2007010510

PATIENT
  Age: 9 Year
  Sex: Female

DRUGS (2)
  1. ZITHROMAX [Suspect]
     Indication: BRONCHOPNEUMONIA
  2. COUGH AND COLD PREPARATIONS [Concomitant]

REACTIONS (2)
  - LUNG INFILTRATION [None]
  - URTICARIA [None]
